FAERS Safety Report 23347300 (Version 1)
Quarter: 2023Q4

REPORT INFORMATION
  Report Type: Spontaneous
  Country: FR (occurrence: FR)
  Receive Date: 20231228
  Receipt Date: 20231228
  Transmission Date: 20240109
  Serious: Yes (Hospitalization)
  Sender: FDA-Public Use
  Company Number: None

PATIENT
  Age: 46 Year
  Sex: Female
  Weight: 80 kg

DRUGS (1)
  1. HIZENTRA [Suspect]
     Active Substance: HUMAN IMMUNOGLOBULIN G
     Indication: Infection prophylaxis
     Dosage: 20 GRAM, TOT
     Route: 058
     Dates: start: 20231213, end: 20231213

REACTIONS (6)
  - Respiratory failure [Recovering/Resolving]
  - Hypertension [Recovering/Resolving]
  - Altered state of consciousness [Recovered/Resolved]
  - Face oedema [Recovering/Resolving]
  - No adverse event [Unknown]
  - Off label use [Unknown]

NARRATIVE: CASE EVENT DATE: 20231213
